FAERS Safety Report 4376332-2 (Version None)
Quarter: 2004Q2

REPORT INFORMATION
  Report Type: 
  Country: None (occurrence: None)
  Receive Date: 20040603
  Receipt Date: 20031023
  Transmission Date: 20050107
  Serious: Yes (Other)
  Sender: FDA-Public Use
  Company Number: 200319273US

PATIENT

DRUGS (3)
  1. LOVENOX [Suspect]
     Dosage: 40 MG ONCE IVB
  2. LOVENOX [Suspect]
     Dosage: 20 MG ONCE IVB
  3. ABCIXIMAB (REOPRO) [Concomitant]

REACTIONS (1)
  - THROMBOSIS [None]
